FAERS Safety Report 6085134-0 (Version None)
Quarter: 2009Q1

REPORT INFORMATION
  Report Type: 
  Country: None (occurrence: None)
  Receive Date: 20090220
  Receipt Date: 20090212
  Transmission Date: 20090719
  Serious: Yes (Other)
  Sender: FDA-Public Use
  Company Number: PHHY2009JP05703

PATIENT
  Age: 70 Year
  Sex: Male

DRUGS (1)
  1. LAMISIL [Suspect]
     Dosage: 3 MG/DAY
     Route: 048
     Dates: start: 20090206

REACTIONS (3)
  - C-REACTIVE PROTEIN INCREASED [None]
  - LARYNGEAL INFLAMMATION [None]
  - THROAT IRRITATION [None]
